FAERS Safety Report 7809724-7 (Version None)
Quarter: 2011Q4

REPORT INFORMATION
  Report Type: 
  Country: None (occurrence: None)
  Receive Date: 20111012
  Receipt Date: 20111003
  Transmission Date: 20120403
  Serious: Yes (Life-Threatening)
  Sender: FDA-Public Use
  Company Number: FR-GLAXOSMITHKLINE-B0754436A

PATIENT
  Sex: Male

DRUGS (11)
  1. SPIRIVA [Suspect]
     Indication: PRODUCT USED FOR UNKNOWN INDICATION
     Dosage: 18MCG PER DAY
     Route: 055
  2. POTASSIUM CHLORIDE [Suspect]
     Indication: PRODUCT USED FOR UNKNOWN INDICATION
     Dosage: 1UNIT PER DAY
     Route: 048
  3. MEDIATOR [Suspect]
     Indication: DIABETES MELLITUS
     Dosage: 150MG THREE TIMES PER DAY
     Route: 048
     Dates: start: 20000101, end: 20090101
  4. PRAVASTATIN [Suspect]
     Indication: PRODUCT USED FOR UNKNOWN INDICATION
     Dosage: 40MG PER DAY
     Route: 048
  5. METFORMIN HYDROCHLORIDE [Suspect]
     Indication: PRODUCT USED FOR UNKNOWN INDICATION
     Dosage: 1000MG TWICE PER DAY
     Route: 048
  6. FORADIL [Suspect]
     Indication: PRODUCT USED FOR UNKNOWN INDICATION
     Dosage: 12MCG PER DAY
     Route: 055
  7. BECLOMETHASONE DIPROPIONATE [Suspect]
     Indication: PRODUCT USED FOR UNKNOWN INDICATION
     Dosage: 400MCG TWICE PER DAY
     Route: 055
  8. VILDAGLIPTIN [Suspect]
     Indication: PRODUCT USED FOR UNKNOWN INDICATION
     Dosage: 50MG TWICE PER DAY
     Route: 048
  9. PLAVIX [Suspect]
     Indication: PRODUCT USED FOR UNKNOWN INDICATION
     Dosage: 75MG PER DAY
     Route: 048
  10. DIAMOX SRC [Suspect]
     Indication: PRODUCT USED FOR UNKNOWN INDICATION
     Dosage: 250MG TWICE PER DAY
     Route: 048
  11. IRBESARTAN [Suspect]
     Indication: PRODUCT USED FOR UNKNOWN INDICATION
     Dosage: 150MG PER DAY
     Route: 048

REACTIONS (2)
  - DYSPNOEA EXERTIONAL [None]
  - PULMONARY HYPERTENSION [None]
